FAERS Safety Report 25961242 (Version 1)
Quarter: 2025Q4

REPORT INFORMATION
  Report Type: Report from Study
  Country: CA (occurrence: CA)
  Receive Date: 20251027
  Receipt Date: 20251027
  Transmission Date: 20260117
  Serious: Yes (Hospitalization, Other)
  Sender: DR REDDYS
  Company Number: CA-DRL-USA-CAN/2025/10/016070

PATIENT
  Age: 69 Year
  Sex: Female

DRUGS (1)
  1. ZOLEDRONIC ACID [Suspect]
     Active Substance: ZOLEDRONIC ACID
     Indication: Osteoporosis
     Dosage: DOSE: 5MG/100ML
     Route: 065
     Dates: start: 20240909

REACTIONS (3)
  - Fall [Unknown]
  - Wrist fracture [Unknown]
  - Pelvic fracture [Unknown]

NARRATIVE: CASE EVENT DATE: 20251013
